FAERS Safety Report 8406881-9 (Version None)
Quarter: 2012Q2

REPORT INFORMATION
  Report Type: 
  Country: None (occurrence: None)
  Receive Date: 20120604
  Receipt Date: 20120530
  Transmission Date: 20120825
  Serious: Yes (Life-Threatening)
  Sender: FDA-Public Use
  Company Number: FR-ASTRAZENECA-2012SE26315

PATIENT
  Age: 11808 Day
  Sex: Male
  Weight: 58 kg

DRUGS (7)
  1. QUETIAPINE FUMARATE [Suspect]
     Route: 048
     Dates: start: 20120315
  2. QUETIAPINE FUMARATE [Suspect]
     Route: 048
     Dates: start: 20120317
  3. QUETIAPINE FUMARATE [Suspect]
     Indication: SCHIZOPHRENIA
     Route: 048
     Dates: start: 20120311
  4. QUETIAPINE FUMARATE [Suspect]
     Route: 048
     Dates: start: 20120313
  5. LOXAPINE HCL [Suspect]
     Indication: SCHIZOPHRENIA
     Route: 048
     Dates: start: 20120410, end: 20120414
  6. QUETIAPINE FUMARATE [Suspect]
     Route: 048
     Dates: start: 20120403
  7. CLONAZEPAM [Concomitant]
     Indication: ANXIETY
     Route: 048
     Dates: start: 20120410

REACTIONS (2)
  - INTESTINAL ISCHAEMIA [None]
  - FAECALOMA [None]
